FAERS Safety Report 5240793-7 (Version None)
Quarter: 2007Q1

REPORT INFORMATION
  Report Type: 
  Country: None (occurrence: None)
  Receive Date: 20070219
  Receipt Date: 20070214
  Transmission Date: 20070707
  Serious: Yes (Life-Threatening, Hospitalization)
  Sender: FDA-Public Use
  Company Number: DE-BAYER-200615903GDS

PATIENT
  Age: 52 Year
  Sex: Male
  Weight: 86 kg

DRUGS (3)
  1. ACTIMAX [Suspect]
     Indication: BRONCHITIS
     Dosage: TOTAL DAILY DOSE: 400 MG  UNIT DOSE: 400 MG
     Route: 048
     Dates: start: 20061108, end: 20061108
  2. L-THYROX JOD HEXAL (LEVOTHYROXINE) [Concomitant]
     Indication: DRUG USE FOR UNKNOWN INDICATION
     Route: 048
  3. SINUPRET [Concomitant]
     Indication: RHINITIS
     Route: 065

REACTIONS (20)
  - ANXIETY [None]
  - ASTHENIA [None]
  - COUGH [None]
  - DRUG HYPERSENSITIVITY [None]
  - DYSARTHRIA [None]
  - DYSKINESIA [None]
  - DYSPNOEA [None]
  - ERYTHEMA [None]
  - GENERAL PHYSICAL HEALTH DETERIORATION [None]
  - GLOSSODYNIA [None]
  - GUILLAIN-BARRE SYNDROME [None]
  - HYPOREFLEXIA [None]
  - MUSCULAR WEAKNESS [None]
  - PHARYNGEAL ERYTHEMA [None]
  - PRURITUS [None]
  - RASH [None]
  - SEDATION [None]
  - THROMBOCYTOPENIA [None]
  - TONSILLAR DISORDER [None]
  - URTICARIA [None]
